FAERS Safety Report 12713636 (Version 1)
Quarter: 2016Q3

REPORT INFORMATION
  Report Type: Spontaneous
  Country: US (occurrence: US)
  Receive Date: 20160903
  Receipt Date: 20160903
  Transmission Date: 20161109
  Serious: Yes (Other)
  Sender: FDA-Public Use
  Company Number: US-AMGEN-USASP2016116675

PATIENT
  Age: 55 Year

DRUGS (5)
  1. CARBOPLATIN. [Concomitant]
     Active Substance: CARBOPLATIN
  2. ZYTIGA [Concomitant]
     Active Substance: ABIRATERONE ACETATE
  3. XGEVA [Suspect]
     Active Substance: DENOSUMAB
     Indication: METASTASES TO BONE
     Dosage: UNK
     Route: 065
  4. XTANDI [Concomitant]
     Active Substance: ENZALUTAMIDE
  5. DOCETAXEL. [Concomitant]
     Active Substance: DOCETAXEL

REACTIONS (6)
  - Prostatic specific antigen increased [Unknown]
  - Colorectal cancer metastatic [Unknown]
  - Metastases to bone [Unknown]
  - Lung neoplasm malignant [Unknown]
  - Metastases to liver [Unknown]
  - Metastases to lung [Unknown]
